FAERS Safety Report 8380011-4 (Version None)
Quarter: 2012Q2

REPORT INFORMATION
  Report Type: 
  Country: None (occurrence: None)
  Receive Date: 20120523
  Receipt Date: 20120515
  Transmission Date: 20120825
  Serious: Yes (Other)
  Sender: FDA-Public Use
  Company Number: DE-UCBSA-057592

PATIENT
  Sex: Female

DRUGS (7)
  1. TRILEPTAL [Concomitant]
  2. VALPROATE SODIUM [Concomitant]
  3. VALPROATE SODIUM [Concomitant]
  4. FRISIUM [Concomitant]
  5. KEPPRA [Suspect]
     Indication: EPILEPSY
     Dosage: DAILY DOSE: 750 MG
     Dates: start: 20110801
  6. KEPPRA [Suspect]
     Indication: HYPEREXPLEXIA
     Dosage: DAILY DOSE: 750 MG
     Dates: start: 20110801
  7. LYRICA [Concomitant]

REACTIONS (6)
  - SKIN DISORDER [None]
  - ALOPECIA [None]
  - HYPEREXPLEXIA [None]
  - SLOW SPEECH [None]
  - SKIN PAPILLOMA [None]
  - SKIN DISCOLOURATION [None]
